FAERS Safety Report 13035101 (Version 10)
Quarter: 2022Q4

REPORT INFORMATION
  Report Type: Spontaneous
  Country: US (occurrence: US)
  Receive Date: 20161216
  Receipt Date: 20221018
  Transmission Date: 20230113
  Serious: Yes (Hospitalization, Other)
  Sender: FDA-Public Use
  Company Number: US-PFIZER INC-2016579864

PATIENT
  Age: 63 Year
  Sex: Male
  Weight: 95 kg

DRUGS (20)
  1. RAPAMUNE [Suspect]
     Active Substance: SIROLIMUS
     Indication: Liver transplant
     Dosage: 2 MG, DAILY
     Route: 048
     Dates: start: 200502
  2. RAPAMUNE [Suspect]
     Active Substance: SIROLIMUS
     Dosage: 2 MG, 1X/DAY
     Route: 048
     Dates: start: 200802
  3. RAPAMUNE [Suspect]
     Active Substance: SIROLIMUS
     Dosage: 2 MG, DAILY (90-DAY SUPPLY)
     Route: 048
  4. RAPAMUNE [Suspect]
     Active Substance: SIROLIMUS
     Dosage: 2 TABLETS BY MOUTH EVERY OTHER DAY AND AND 1 TABLET EVERY OTHER DAY
  5. LIPITOR [Concomitant]
     Active Substance: ATORVASTATIN CALCIUM
     Indication: Blood cholesterol
     Dosage: 40 MG, 1X/DAY
     Dates: start: 2011
  6. SYNTHROID [Concomitant]
     Active Substance: LEVOTHYROXINE SODIUM
     Indication: Thyroid disorder
     Dosage: 175 UG, 1X/DAY
     Dates: start: 2013
  7. ZOLOFT [Concomitant]
     Active Substance: SERTRALINE HYDROCHLORIDE
     Indication: Suicidal behaviour
     Dosage: 100 MG, 1X/DAY
     Dates: start: 2004
  8. ZOLOFT [Concomitant]
     Active Substance: SERTRALINE HYDROCHLORIDE
     Indication: Homicidal ideation
  9. LOPID [Concomitant]
     Active Substance: GEMFIBROZIL
     Dosage: 600 MG, 2X/DAY
     Dates: start: 2012
  10. AMBIEN [Concomitant]
     Active Substance: ZOLPIDEM TARTRATE
     Indication: Sleep disorder
     Dosage: 5 MG, 1X/DAY
     Dates: start: 2000
  11. COZAAR [Concomitant]
     Active Substance: LOSARTAN POTASSIUM
     Indication: Renal disorder
     Dosage: 50 MG, 1X/DAY
     Dates: start: 2012
  12. NOVOLOG MIX 70/30 [Concomitant]
     Active Substance: INSULIN ASPART
     Indication: Diabetes mellitus
     Dosage: 45 IU, 2X/DAY
     Dates: start: 2014
  13. COUMADIN [Concomitant]
     Active Substance: WARFARIN SODIUM
     Indication: Cardiac disorder
     Dosage: 2 MG, 1X/DAY
     Dates: start: 2014
  14. ASPIRIN [Concomitant]
     Active Substance: ASPIRIN
     Indication: Cardiac disorder
     Dosage: 81 MG, ALTERNATE DAY
     Dates: start: 1999
  15. ERGOCALCIFEROL [Concomitant]
     Active Substance: ERGOCALCIFEROL
     Dosage: 4000 IU, 1X/DAY
     Dates: start: 2015
  16. FERROUS SULFATE [Concomitant]
     Active Substance: FERROUS SULFATE
     Indication: Blood iron
     Dosage: 325 MG, 1X/DAY (WITH BREAKFAST)
     Route: 048
     Dates: start: 2014
  17. VITAMIN D3 [Concomitant]
     Active Substance: CHOLECALCIFEROL
     Dosage: 2000 IU, UNK (6 DAYS WEEKLY; 5000 UNITS ONE DAY)
     Route: 048
     Dates: start: 2014
  18. LANOXIN [Concomitant]
     Active Substance: DIGOXIN
     Dosage: 125 UG, DAILY
     Route: 048
     Dates: start: 2015
  19. NOVOLIN NOS [Concomitant]
     Active Substance: INSULIN HUMAN
     Dosage: UNK UNK, 2X/DAY (100 IU/ML)
     Route: 058
     Dates: start: 200204
  20. LEVOTHROID [Concomitant]
     Active Substance: LEVOTHYROXINE SODIUM
     Dosage: 175 UG, DAILY
     Route: 048

REACTIONS (5)
  - Road traffic accident [Not Recovered/Not Resolved]
  - Eye infection [Not Recovered/Not Resolved]
  - Blindness unilateral [Not Recovered/Not Resolved]
  - Off label use [Not Recovered/Not Resolved]
  - Off label use [Not Recovered/Not Resolved]

NARRATIVE: CASE EVENT DATE: 20050201
